FAERS Safety Report 22101097 (Version 1)
Quarter: 2023Q1

REPORT INFORMATION
  Report Type: Spontaneous
  Country: US (occurrence: US)
  Receive Date: 20230316
  Receipt Date: 20230316
  Transmission Date: 20230418
  Serious: No
  Sender: FDA-Public Use
  Company Number: US-Hikma Pharmaceuticals USA Inc.-US-H14001-22-00730

PATIENT
  Sex: Female

DRUGS (5)
  1. FLUTICASONE [Suspect]
     Active Substance: FLUTICASONE
     Indication: Nasal congestion
     Dosage: PRESCRIBED DOSE: 1 SPRAY EACH NOSTRIL. THE PATIENT USED 2 SPRAYS EACH NOSTRIL.
     Route: 045
     Dates: start: 20220301, end: 20220302
  2. FLUTICASONE [Suspect]
     Active Substance: FLUTICASONE
     Indication: Rhinorrhoea
  3. FLUTICASONE [Suspect]
     Active Substance: FLUTICASONE
     Indication: Hypersensitivity
  4. BENZONATATE [Concomitant]
     Active Substance: BENZONATATE
     Indication: Product used for unknown indication
     Dosage: 1-2 CAPSULES THREE TIMES A DAY AS NEEDED
     Route: 048
  5. CEFUROXIME [Concomitant]
     Active Substance: CEFUROXIME
     Indication: Product used for unknown indication
     Dosage: ONE TABLET TWICE A DAY, FOR 10 DAYS
     Route: 048

REACTIONS (2)
  - Anosmia [Not Recovered/Not Resolved]
  - Off label use [Unknown]
